FAERS Safety Report 6499099-0 (Version None)
Quarter: 2009Q4

REPORT INFORMATION
  Report Type: 
  Country: None (occurrence: None)
  Receive Date: 20091215
  Receipt Date: 20091204
  Transmission Date: 20100525
  Serious: Yes (Hospitalization, Other)
  Sender: FDA-Public Use
  Company Number: US-PFIZER INC-2009306665

PATIENT
  Sex: Male
  Weight: 98.866 kg

DRUGS (5)
  1. GABAPENTIN [Suspect]
     Indication: BACK PAIN
     Dosage: 600 MG, UNK
     Route: 048
  2. BACLOFEN [Concomitant]
  3. MAGNESIUM [Concomitant]
  4. CALCIUM [Concomitant]
  5. ACETYLSALICYLIC ACID [Concomitant]

REACTIONS (11)
  - ANORGASMIA [None]
  - BALANCE DISORDER [None]
  - CHRONIC LYMPHOCYTIC LEUKAEMIA [None]
  - CONSTIPATION [None]
  - DIZZINESS [None]
  - DRY MOUTH [None]
  - FATIGUE [None]
  - MICTURITION DISORDER [None]
  - SOMNOLENCE [None]
  - SPLENOMEGALY [None]
  - WEIGHT INCREASED [None]
